FAERS Safety Report 11786591 (Version 1)
Quarter: 2015Q4

REPORT INFORMATION
  Report Type: Spontaneous
  Country: IT (occurrence: IT)
  Receive Date: 20151130
  Receipt Date: 20151130
  Transmission Date: 20160305
  Serious: Yes (Other)
  Sender: FDA-Public Use
  Company Number: IT-PFIZER INC-2015411390

PATIENT
  Age: 17 Year
  Sex: Male
  Weight: 67 kg

DRUGS (2)
  1. BASSADO [Suspect]
     Active Substance: DOXYCYCLINE HYCLATE
     Indication: INFECTED DERMAL CYST
     Dosage: 1 DF, DAILY
     Route: 048
     Dates: start: 20151106, end: 20151108
  2. BACTROBAN [Concomitant]
     Active Substance: MUPIROCIN\MUPIROCIN CALCIUM
     Indication: INFECTED DERMAL CYST
     Dosage: 3 DF, UNK
     Route: 003

REACTIONS (1)
  - Eyelid oedema [Recovering/Resolving]

NARRATIVE: CASE EVENT DATE: 20151107
